FAERS Safety Report 7691401-7 (Version None)
Quarter: 2011Q3

REPORT INFORMATION
  Report Type: 
  Country: None (occurrence: None)
  Receive Date: 20110818
  Receipt Date: 20110808
  Transmission Date: 20111222
  Serious: Yes (Other)
  Sender: FDA-Public Use
  Company Number: PHHY2011AU68086

PATIENT
  Sex: Male
  Weight: 75 kg

DRUGS (3)
  1. GILENYA [Suspect]
     Indication: RELAPSING-REMITTING MULTIPLE SCLEROSIS
     Dosage: UNK
     Route: 048
     Dates: start: 20110419, end: 20110427
  2. GILENYA [Suspect]
     Dosage: UNK
     Route: 048
     Dates: start: 20110516
  3. STREPTOCOCCUS FAECALIS [Concomitant]

REACTIONS (6)
  - NEUTROPHIL COUNT INCREASED [None]
  - PEPTOSTREPTOCOCCUS INFECTION [None]
  - LYMPHOCYTE COUNT DECREASED [None]
  - ABSCESS [None]
  - MONOCYTE COUNT INCREASED [None]
  - CELLULITIS [None]
